FAERS Safety Report 6067361-1 (Version None)
Quarter: 2009Q1

REPORT INFORMATION
  Report Type: 
  Country: None (occurrence: None)
  Receive Date: 20090205
  Receipt Date: 20090130
  Transmission Date: 20090719
  Serious: Yes (Hospitalization)
  Sender: FDA-Public Use
  Company Number: US-GENENTECH-241168

PATIENT
  Sex: Female

DRUGS (18)
  1. OMALIZUMAB [Suspect]
     Indication: ASTHMA
     Dosage: 225 MG, Q2W
     Dates: start: 20031028, end: 20070701
  2. SOLU-MEDROL [Suspect]
     Indication: ASTHMA
     Dosage: 50 MG, TID
     Route: 030
     Dates: start: 20070908, end: 20070909
  3. TYLENOL [Concomitant]
     Indication: SINUS HEADACHE
  4. ALLERGY SHOTS [Concomitant]
     Indication: HYPERSENSITIVITY
  5. SINGULAIR [Concomitant]
     Indication: ASTHMA
  6. ZYFLO [Concomitant]
     Indication: ASTHMA
  7. XOPENEX [Concomitant]
     Indication: ASTHMA
  8. ALLEGRA [Concomitant]
     Indication: HYPERSENSITIVITY
  9. PULMICORT-100 [Concomitant]
     Indication: ASTHMA
  10. METHYLPREDNISOLONE 4MG TAB [Concomitant]
     Indication: ASTHMA
  11. SUDAFED 12 HOUR [Concomitant]
     Indication: HYPERSENSITIVITY
  12. BENADRYL [Concomitant]
     Indication: HYPERSENSITIVITY
  13. ADVAIR DISKUS 100/50 [Concomitant]
     Indication: ASTHMA
  14. VITAMIN TAB [Concomitant]
     Indication: PREGNANCY
  15. LEVAQUIN [Concomitant]
     Indication: INFECTION
  16. PERCOCET [Concomitant]
     Indication: INCISION SITE PAIN
  17. MOTRIN [Concomitant]
     Indication: INCISION SITE PAIN
  18. GAMUNEX [Concomitant]
     Indication: BLOOD IMMUNOGLOBULIN G DECREASED

REACTIONS (2)
  - ARRESTED LABOUR [None]
  - DRUG EXPOSURE DURING PREGNANCY [None]
